FAERS Safety Report 12920900 (Version 1)
Quarter: 2016Q4

REPORT INFORMATION
  Report Type: Spontaneous
  Country: US (occurrence: US)
  Receive Date: 20161107
  Receipt Date: 20161107
  Transmission Date: 20170207
  Serious: Yes (Other)
  Sender: FDA-Public Use
  Company Number: None

PATIENT
  Age: 26 Year
  Sex: Female
  Weight: 58.5 kg

DRUGS (8)
  1. ASPIRIN. [Concomitant]
     Active Substance: ASPIRIN
  2. TUMS [Concomitant]
     Active Substance: CALCIUM CARBONATE
  3. ANTACIDS [Concomitant]
     Active Substance: UNSPECIFIED INGREDIENT
  4. LORAZEPAM (GENERIC FOR ATIVAN) [Suspect]
     Active Substance: LORAZEPAM
     Indication: PANIC ATTACK
     Dosage: ?          QUANTITY:1 TABLET(S);?
     Route: 048
     Dates: start: 20160701, end: 20161104
  5. LORAZEPAM (GENERIC FOR ATIVAN) [Suspect]
     Active Substance: LORAZEPAM
     Indication: ANXIETY
     Dosage: ?          QUANTITY:1 TABLET(S);?
     Route: 048
     Dates: start: 20160701, end: 20161104
  6. ALLOPURINOL. [Concomitant]
     Active Substance: ALLOPURINOL
  7. MERCAPTOPURINE. [Concomitant]
     Active Substance: MERCAPTOPURINE
  8. ACETEMINOPHEN [Concomitant]

REACTIONS (4)
  - Depression [None]
  - Crying [None]
  - Lethargy [None]
  - Agoraphobia [None]

NARRATIVE: CASE EVENT DATE: 20161104
